FAERS Safety Report 24645541 (Version 1)
Quarter: 2024Q4

REPORT INFORMATION
  Report Type: Spontaneous
  Country: AT (occurrence: AT)
  Receive Date: 20241121
  Receipt Date: 20241121
  Transmission Date: 20250114
  Serious: Yes (Other)
  Sender: PHARMAESSENTIA
  Company Number: AT-PHARMAESSENTIA-AT-2024-PEC-005188

PATIENT
  Age: 68 Year
  Sex: Male

DRUGS (3)
  1. BESREMI [Suspect]
     Active Substance: ROPEGINTERFERON ALFA-2B-NJFT
     Indication: Product used for unknown indication
     Dosage: BESREMI THERAPY START DATE ONLY YEAR PROVIDED;
     Route: 058
     Dates: start: 2022
  2. BESREMI [Suspect]
     Active Substance: ROPEGINTERFERON ALFA-2B-NJFT
     Dosage: BIWEEKLY UNTIL THE BEGINNING OF 2024
     Route: 058
     Dates: end: 2024
  3. BESREMI [Suspect]
     Active Substance: ROPEGINTERFERON ALFA-2B-NJFT
     Dosage: 100 MICROGRAM EVERY 2 WEEK(S) EVERY 3 WEEKS (MAINTANANCE DOSE IN 2024)
     Route: 058
     Dates: start: 2024

REACTIONS (1)
  - Hepatic cirrhosis [Unknown]
